FAERS Safety Report 8417266 (Version 3)
Quarter: 2013Q2

REPORT INFORMATION
  Report Type: Report from Study
  Country: CA (occurrence: CA)
  Receive Date: 20120220
  Receipt Date: 20130502
  Transmission Date: 20140414
  Serious: Yes (Hospitalization, Other)
  Sender: FDA-Public Use
  Company Number: CA-ROCHE-1039486

PATIENT
  Age: 52 Year
  Sex: Male
  Weight: 85.3 kg

DRUGS (4)
  1. BEVACIZUMAB [Suspect]
     Indication: GLIOBLASTOMA
     Route: 042
     Dates: start: 20111230, end: 20120210
  2. DECADRON [Concomitant]
  3. ZANTAC [Concomitant]
  4. LORAZEPAM [Concomitant]

REACTIONS (2)
  - Depression [Not Recovered/Not Resolved]
  - Pulmonary embolism [Unknown]
